FAERS Safety Report 5364375-1 (Version None)
Quarter: 2007Q2

REPORT INFORMATION
  Report Type: 
  Country: None (occurrence: None)
  Receive Date: 20070618
  Receipt Date: 20070606
  Transmission Date: 20071010
  Serious: Yes (Other)
  Sender: FDA-Public Use
  Company Number: 2007BI012443

PATIENT
  Age: 52 Year
  Sex: Female

DRUGS (1)
  1. AVONEX [Suspect]
     Indication: MULTIPLE SCLEROSIS
     Dosage: 30 UG;QW; IM
     Route: 030
     Dates: start: 20001113

REACTIONS (5)
  - BREAST DISORDER [None]
  - DEPRESSION [None]
  - NERVOUS SYSTEM DISORDER [None]
  - PRECANCEROUS CELLS PRESENT [None]
  - SCHIZOPHRENIA [None]
